FAERS Safety Report 8799174 (Version 1)
Quarter: 2012Q4

REPORT INFORMATION
  Report Type: 
  Country: US (occurrence: US)
  Receive Date: 20120920
  Receipt Date: 20120920
  Transmission Date: 20130627
  Serious: No
  Sender: FDA-Public Use
  Company Number: US-ASTRAZENECA-2012SE17204

PATIENT
  Age: 73 Year
  Sex: Female

DRUGS (7)
  1. LISINOPRIL [Suspect]
     Route: 048
  2. TOPROL XL [Suspect]
     Route: 048
  3. BRILINTA [Suspect]
     Route: 048
  4. MICROZIDE [Concomitant]
  5. PLAVIX [Concomitant]
  6. EFFIENT [Concomitant]
  7. LIPITOR [Concomitant]

REACTIONS (2)
  - Urticaria [Unknown]
  - Rash [Unknown]
